FAERS Safety Report 7353897-X (Version None)
Quarter: 2011Q1

REPORT INFORMATION
  Report Type: 
  Country: None (occurrence: None)
  Receive Date: 20110315
  Receipt Date: 20110303
  Transmission Date: 20110831
  Serious: Yes (Other)
  Sender: FDA-Public Use
  Company Number: JP-SANOFI-AVENTIS-2011SA013724

PATIENT
  Age: 64 Year
  Sex: Male

DRUGS (10)
  1. 5-FU [Suspect]
     Route: 041
     Dates: start: 20100723
  2. 5-FU [Suspect]
     Route: 041
     Dates: start: 20101126
  3. AVASTIN [Suspect]
     Indication: LARGE INTESTINE CARCINOMA
     Route: 041
     Dates: start: 20100806, end: 20100806
  4. AVASTIN [Suspect]
     Route: 041
     Dates: start: 20101126, end: 20101126
  5. OXALIPLATIN [Suspect]
     Route: 042
     Dates: start: 20100723, end: 20100723
  6. OXINORM [Concomitant]
     Dates: start: 20101122
  7. FENTANYL [Concomitant]
     Dates: start: 20101122
  8. XELODA [Suspect]
     Route: 048
     Dates: start: 20100827, end: 20101029
  9. CALCIUM LEVOFOLINATE [Suspect]
     Route: 042
     Dates: start: 20101126, end: 20101126
  10. OXALIPLATIN [Suspect]
     Route: 042
     Dates: start: 20101126, end: 20101126

REACTIONS (3)
  - NEUTROPHIL COUNT DECREASED [None]
  - DEPRESSED LEVEL OF CONSCIOUSNESS [None]
  - LEUKOENCEPHALOPATHY [None]
